FAERS Safety Report 7307083-X (Version None)
Quarter: 2011Q1

REPORT INFORMATION
  Report Type: 
  Country: None (occurrence: None)
  Receive Date: 20110223
  Receipt Date: 20110209
  Transmission Date: 20110831
  Serious: No
  Sender: FDA-Public Use
  Company Number: US-BIOGENIDEC-2011BI005956

PATIENT
  Age: 56 Year
  Sex: Female

DRUGS (3)
  1. AMPYRA [Concomitant]
     Dates: start: 20100101
  2. TYSABRI [Suspect]
     Route: 042
     Dates: start: 20070910, end: 20091030
  3. TYSABRI [Suspect]
     Indication: MULTIPLE SCLEROSIS
     Route: 042
     Dates: start: 20101001, end: 20101126

REACTIONS (2)
  - NASOPHARYNGITIS [None]
  - LOSS OF CONTROL OF LEGS [None]
